FAERS Safety Report 21515208 (Version 4)
Quarter: 2023Q2

REPORT INFORMATION
  Report Type: Spontaneous
  Country: IN (occurrence: IN)
  Receive Date: 20221027
  Receipt Date: 20230614
  Transmission Date: 20230721
  Serious: Yes (Hospitalization, Other)
  Sender: FDA-Public Use
  Company Number: IN-PFIZER INC-2020003741

PATIENT
  Age: 58 Year
  Sex: Male

DRUGS (13)
  1. SUTENT [Suspect]
     Active Substance: SUNITINIB MALATE
     Indication: Gastrointestinal stromal tumour
     Dosage: 50 MG, CYCLIC (2 WEEKS ON AND 1 WEEK OFF))
     Route: 048
     Dates: start: 20191218
  2. SUTENT [Suspect]
     Active Substance: SUNITINIB MALATE
     Dosage: 37.5 MG, CYCLIC (2 WEEKS ON AND 1 WEEK OFF)
     Route: 048
  3. SUTENT [Suspect]
     Active Substance: SUNITINIB MALATE
     Dosage: 50 MG, 1X/DAY
     Route: 048
     Dates: start: 20221105, end: 20221208
  4. SUTENT [Suspect]
     Active Substance: SUNITINIB MALATE
     Dosage: 25 MG, CYCLIC 2 WEEK ON 1 WEEK OFF
     Route: 048
  5. SUTENT [Suspect]
     Active Substance: SUNITINIB MALATE
     Dosage: 37.5 MG, CYCLIC ONCE A DAY FOR 2 WEEKS ON 1 WEEK OFF
     Route: 048
  6. RABIROS [Concomitant]
     Dosage: 20 MG, 2X/DAY (20MG TWICE A DAY X 1 MONTH)
  7. TOPCID [Concomitant]
     Dosage: UNK, 2X/DAY (TWICE A DAY X 1 MONTH)
  8. ITOPRIDE [Concomitant]
     Active Substance: ITOPRIDE
     Dosage: 50 MG, 3X/DAY (50 MG THRICE A DAY X 1MONTH)
  9. LEVOTHYROXINE [Concomitant]
     Active Substance: LEVOTHYROXINE
     Dosage: 100 UG, 1X/DAY (100MCG ONCE A DAY X 1 MONTH)
  10. ZOLPIDEM TARTRATE [Concomitant]
     Active Substance: ZOLPIDEM TARTRATE
     Dosage: 10 MG, 1X/DAY (10 MG AT BED TIME X 1 MONTH)
  11. BUTYLSCOPOLAMINE BROMIDE [Concomitant]
     Active Substance: BUTYLSCOPOLAMINE BROMIDE
     Dosage: UNK, 2X/DAY (TWICE A DAY X 7DAYS -SOS)
  12. LOPERAMIDE [Concomitant]
     Active Substance: LOPERAMIDE
     Indication: Diarrhoea
     Dosage: 2 MG, AS NEEDED (2MG SOS)
  13. SUCRAMAL-O [Concomitant]
     Dosage: UNK, 3X/DAY

REACTIONS (8)
  - Gastritis [Unknown]
  - Hypothyroidism [Unknown]
  - Blood thyroid stimulating hormone decreased [Unknown]
  - Blood thyroid stimulating hormone increased [Unknown]
  - Asthenia [Unknown]
  - Localised infection [Unknown]
  - Malaise [Unknown]
  - Neoplasm progression [Unknown]

NARRATIVE: CASE EVENT DATE: 20220908
